FAERS Safety Report 22977019 (Version 2)
Quarter: 2023Q4

REPORT INFORMATION
  Report Type: Spontaneous
  Country: US (occurrence: US)
  Receive Date: 20230925
  Receipt Date: 20231013
  Transmission Date: 20240109
  Serious: Yes (Hospitalization, Other)
  Sender: FDA-Public Use
  Company Number: US-CATALYST PHARMACEUTICALS, INC-US-CATA-23-00533

PATIENT
  Sex: Female
  Weight: 6.72 kg

DRUGS (5)
  1. FIRDAPSE [Suspect]
     Active Substance: AMIFAMPRIDINE PHOSPHATE
     Indication: Myasthenic syndrome
     Dosage: 2.5 MG ONCE A DAY FOR 7 DAYS AND INCREASE BY 2.5 MG EVERY 7 DAYS
     Route: 050
     Dates: start: 20230819, end: 20230824
  2. FIRDAPSE [Suspect]
     Active Substance: AMIFAMPRIDINE PHOSPHATE
     Dosage: 2.5 MG EVERY 6 HOURS FOR 1 WEEK, THEN INCREASING TO 5 MG EVERY 6 HOURS FOR A WEEK, THEN 7.5 MG EVERY
     Route: 050
     Dates: start: 20230914
  3. VITAMINS [Concomitant]
     Active Substance: VITAMINS
     Indication: Product used for unknown indication
     Dosage: UNK, QD
     Route: 065
     Dates: start: 2023
  4. MESTINON [Concomitant]
     Active Substance: PYRIDOSTIGMINE BROMIDE
     Indication: Product used for unknown indication
     Dosage: 2.5 ML FOUR TIMES A DAY
     Route: 065
     Dates: start: 20230727
  5. TYLENOL [Concomitant]
     Active Substance: ACETAMINOPHEN
     Indication: Product used for unknown indication
     Dosage: 5 ML AS NEEDED
     Route: 065
     Dates: start: 2023

REACTIONS (11)
  - Medical device site infection [Recovered/Resolved]
  - Severe myoclonic epilepsy of infancy [Recovered/Resolved]
  - Haemangioma of skin [Unknown]
  - Granuloma skin [Unknown]
  - Hypotonia [Unknown]
  - Aspiration [Unknown]
  - Increased upper airway secretion [Unknown]
  - Muscular weakness [Unknown]
  - Gastrooesophageal reflux disease [Unknown]
  - Product use issue [Unknown]
  - Drug interaction [Unknown]

NARRATIVE: CASE EVENT DATE: 20230101
